FAERS Safety Report 18130574 (Version 2)
Quarter: 2020Q3

REPORT INFORMATION
  Report Type: Report from Study
  Country: CA (occurrence: CA)
  Receive Date: 20200810
  Receipt Date: 20200929
  Transmission Date: 20201103
  Serious: Yes (Other)
  Sender: FDA-Public Use
  Company Number: CA-JNJFOC-20200632560

PATIENT
  Age: 46 Year
  Sex: Female
  Weight: 81.72 kg

DRUGS (2)
  1. STELARA [Suspect]
     Active Substance: USTEKINUMAB
     Indication: CROHN^S DISEASE
     Route: 042
     Dates: start: 20200605
  2. STELARA [Suspect]
     Active Substance: USTEKINUMAB
     Route: 042

REACTIONS (8)
  - Abdominal pain [Unknown]
  - Inappropriate schedule of product administration [Unknown]
  - Vitamin B12 deficiency [Not Recovered/Not Resolved]
  - Memory impairment [Unknown]
  - Lower respiratory tract infection [Unknown]
  - Fatigue [Not Recovered/Not Resolved]
  - Depression [Unknown]
  - Pneumonia [Recovering/Resolving]

NARRATIVE: CASE EVENT DATE: 2020
